FAERS Safety Report 25633391 (Version 1)
Quarter: 2025Q3

REPORT INFORMATION
  Report Type: Spontaneous
  Country: US (occurrence: None)
  Receive Date: 20250801
  Receipt Date: 20250801
  Transmission Date: 20251021
  Serious: Yes (Life-Threatening, Disabling)
  Sender: FDA-CTU
  Company Number: None

PATIENT
  Age: 71 Year
  Sex: Female
  Weight: 105.75 kg

DRUGS (11)
  1. ALENDRONATE SODIUM [Suspect]
     Active Substance: ALENDRONATE SODIUM
     Indication: Osteoporosis
     Dosage: FREQUENCY : WEEKLY;?
     Route: 048
     Dates: end: 20250617
  2. SYNTHROID [Concomitant]
     Active Substance: LEVOTHYROXINE SODIUM
  3. OMEPRAZOLE [Concomitant]
     Active Substance: OMEPRAZOLE
  4. SIMVASTATIN [Concomitant]
     Active Substance: SIMVASTATIN
  5. Amlodepine [Concomitant]
  6. C [Concomitant]
  7. CALCIUM [Concomitant]
     Active Substance: CALCIUM
  8. MAGNESIUM [Concomitant]
     Active Substance: MAGNESIUM
  9. Multi [Concomitant]
  10. HERBALS [Concomitant]
     Active Substance: HERBALS
  11. ZINC [Concomitant]
     Active Substance: ZINC

REACTIONS (6)
  - Musculoskeletal stiffness [None]
  - Arthralgia [None]
  - Joint swelling [None]
  - Muscle spasms [None]
  - Neck pain [None]
  - Blood pressure increased [None]

NARRATIVE: CASE EVENT DATE: 20250607
